FAERS Safety Report 8835949 (Version 1)
Quarter: 2012Q4

REPORT INFORMATION
  Report Type: Report from Study
  Country: US (occurrence: US)
  Receive Date: 20121011
  Receipt Date: 20121011
  Transmission Date: 20130627
  Serious: Yes (Hospitalization, Other)
  Sender: FDA-Public Use
  Company Number: US-009507513-2008SP004143

PATIENT
  Age: 53 None
  Sex: Female
  Weight: 62.7 kg

DRUGS (22)
  1. INFLIXIMAB [Suspect]
     Indication: HEPATITIS C
     Dosage: 80 Microgram, UNK
     Route: 058
     Dates: start: 20070912, end: 20080319
  2. BLINDED PEGINTERFERON ALFA-2B [Suspect]
     Indication: HEPATITIS C
     Dosage: 80 Microgram, UNK
     Route: 058
     Dates: start: 20070912, end: 20080319
  3. BLINDED POST TRIAL THERAPY [Suspect]
     Indication: HEPATITIS C
     Dosage: 80 Microgram, UNK
     Route: 058
     Dates: start: 20070912, end: 20080319
  4. BLINDED POST TRIAL THERAPY [Suspect]
     Indication: HEPATITIS C
     Dosage: 80 Microgram, UNK
     Route: 058
     Dates: start: 20070912, end: 20080319
  5. BLINDED PRE TRIAL THERAPY [Suspect]
     Indication: HEPATITIS C
     Dosage: 80 Microgram, UNK
     Route: 058
     Dates: start: 20070912, end: 20080319
  6. BLINDED PRE TRIAL THERAPY [Suspect]
     Indication: HEPATITIS C
     Dosage: 80 Microgram, UNK
     Route: 058
     Dates: start: 20070912, end: 20080319
  7. BLINDED RIBAVIRIN [Suspect]
     Indication: HEPATITIS C
     Dosage: 80 Microgram, UNK
     Route: 058
     Dates: start: 20070912, end: 20080319
  8. REBETOL [Suspect]
     Indication: HEPATITIS C
     Dosage: 800 mg, UNK
     Route: 048
     Dates: start: 20070912, end: 20080319
  9. REMICADE [Suspect]
     Indication: HEPATITIS C
     Dosage: 313 mg, UNK
     Route: 042
     Dates: start: 20070912, end: 20080213
  10. DOXYCYCLINE [Concomitant]
     Indication: PROPHYLAXIS
     Dosage: 100 mg, BID
     Route: 048
     Dates: start: 20080310, end: 20080319
  11. SULFAMETHOXAZOLE (+) TRIMETHOPRIM [Concomitant]
     Indication: PROPHYLAXIS
     Dosage: 800 mg, BID
     Route: 048
     Dates: start: 20080310, end: 20080319
  12. NAPROSYN [Concomitant]
     Dosage: 500 mg, BID
     Route: 048
     Dates: start: 20071231
  13. NORVASC [Concomitant]
     Dosage: 5 mg, QD
     Route: 048
     Dates: start: 20080103
  14. PLAQUENIL [Concomitant]
     Dosage: 200 mg, BID
     Route: 048
     Dates: start: 20080206
  15. HYDROCHLOROTHIAZIDE (+) LISINOPRIL [Concomitant]
     Dosage: 20 mg, QD
     Route: 048
     Dates: start: 2008
  16. OMEGA-3 MARINE TRIGLYCERIDES [Concomitant]
     Dosage: 1000 mg, QD
     Dates: start: 200605
  17. GLUCOTROL [Concomitant]
     Dosage: 5 mg, BID
     Route: 048
     Dates: start: 2004
  18. DARVOCET-N [Concomitant]
  19. RESTORIL (TEMAZEPAM) [Concomitant]
  20. LORTAB [Concomitant]
  21. PHENADOZ [Concomitant]
  22. PRILOSEC [Concomitant]

REACTIONS (10)
  - Hypoglycaemia [Recovered/Resolved]
  - Abscess [Recovered/Resolved]
  - Dyspnoea [Recovered/Resolved]
  - Cellulitis staphylococcal [Recovered/Resolved]
  - Sepsis [Recovered/Resolved]
  - Renal failure acute [Not Recovered/Not Resolved]
  - Pneumonia [Not Recovered/Not Resolved]
  - Anaemia [Not Recovered/Not Resolved]
  - Nausea [Recovered/Resolved]
  - Vomiting [Recovered/Resolved]
